FAERS Safety Report 6386616-4 (Version None)
Quarter: 2009Q4

REPORT INFORMATION
  Report Type: 
  Country: None (occurrence: None)
  Receive Date: 20091002
  Receipt Date: 20090922
  Transmission Date: 20100525
  Serious: Yes (Hospitalization, Disabling, Other)
  Sender: FDA-Public Use
  Company Number: US-BAYER-200914656BCC

PATIENT
  Age: 57 Year
  Sex: Male
  Weight: 82 kg

DRUGS (6)
  1. BRONKAID DUAL ACTION CAPLETS [Suspect]
     Indication: LOWER RESPIRATORY TRACT INFECTION
     Route: 048
     Dates: end: 20070101
  2. CLONAZEPAM [Concomitant]
  3. NEURONTIN [Concomitant]
  4. ZOCOR [Concomitant]
  5. FLOMAX [Concomitant]
  6. ATIVAN [Concomitant]
     Indication: CONVULSION
     Route: 042

REACTIONS (16)
  - ADVERSE EVENT [None]
  - ANXIETY [None]
  - ASTHENIA [None]
  - BLOOD GLUCOSE INCREASED [None]
  - CONVULSION [None]
  - DECREASED APPETITE [None]
  - DEPRESSION [None]
  - DIABETES MELLITUS [None]
  - FEELING JITTERY [None]
  - IMPAIRED WORK ABILITY [None]
  - INSOMNIA [None]
  - LETHARGY [None]
  - MALAISE [None]
  - MENTAL DISORDER [None]
  - NERVOUSNESS [None]
  - NEUROPATHY PERIPHERAL [None]
